FAERS Safety Report 15313044 (Version 1)
Quarter: 2018Q3

REPORT INFORMATION
  Report Type: Spontaneous
  Country: US (occurrence: US)
  Receive Date: 20180814
  Receipt Date: 20180814
  Transmission Date: 20181010
  Serious: Yes (Hospitalization, Disabling, Other)
  Sender: FDA-Public Use
  Company Number: None

PATIENT
  Age: 44 Year
  Sex: Female
  Weight: 111.15 kg

DRUGS (1)
  1. CLINDAMYCIN. [Suspect]
     Active Substance: CLINDAMYCIN
     Indication: TOOTH INFECTION
     Dosage: ?          QUANTITY:3 CAPSULE(S);?
     Route: 048
     Dates: start: 20180616, end: 20180625

REACTIONS (5)
  - Haematemesis [None]
  - Clostridium difficile infection [None]
  - Malaise [None]
  - Abdominal pain upper [None]
  - Impaired work ability [None]

NARRATIVE: CASE EVENT DATE: 20180705
